FAERS Safety Report 9771430 (Version 2)
Quarter: 2014Q2

REPORT INFORMATION
  Report Type: Spontaneous
  Country: US (occurrence: US)
  Receive Date: 20131219
  Receipt Date: 20140509
  Transmission Date: 20141212
  Serious: Yes (Other)
  Sender: FDA-Public Use
  Company Number: US-PAR PHARMACEUTICAL, INC-2013SCPR007822

PATIENT
  Sex: 0

DRUGS (2)
  1. CHOLESTYRAMINE [Suspect]
     Indication: DIARRHOEA
     Dosage: ONE SCOOP, OD
     Route: 048
     Dates: start: 20131115, end: 20131115
  2. VITAMINS                           /00067501/ [Concomitant]
     Indication: PRODUCT USED FOR UNKNOWN INDICATION
     Dosage: UNK, UNKNOWN
     Route: 065

REACTIONS (4)
  - Cyanosis [Recovered/Resolved]
  - Off label use [Unknown]
  - Urticaria [Recovered/Resolved]
  - Rash [Recovered/Resolved]
